FAERS Safety Report 8973303 (Version 1)
Quarter: 2012Q4

REPORT INFORMATION
  Report Type: 
  Country: US (occurrence: US)
  Receive Date: 20121218
  Receipt Date: 20121218
  Transmission Date: 20130627
  Serious: Yes (Other)
  Sender: FDA-Public Use
  Company Number: US-BRISTOL-MYERS SQUIBB COMPANY-16436925

PATIENT
  Age: 62 Year
  Sex: Female
  Weight: 70.29 kg

DRUGS (1)
  1. ABILIFY [Suspect]
     Indication: DEPRESSION
     Dosage: one pill a day for 5 days and after that two pills a day.
     Dates: start: 20111029

REACTIONS (1)
  - Weight increased [Unknown]
